FAERS Safety Report 20412461 (Version 1)
Quarter: 2022Q1

REPORT INFORMATION
  Report Type: Spontaneous
  Country: US (occurrence: US)
  Receive Date: 20220201
  Receipt Date: 20220201
  Transmission Date: 20220424
  Serious: Yes (Other)
  Sender: FDA-Public Use
  Company Number: US-BAYER-2022A016332

PATIENT

DRUGS (1)
  1. ALKA-SELTZER PLUS MAXIMUM STRENGTH COLD AND COUGH LIQUID GELS WITH COO [Suspect]
     Active Substance: ACETAMINOPHEN\CHLORPHENIRAMINE MALEATE\DEXTROMETHORPHAN HYDROBROMIDE\PHENYLEPHRINE HYDROCHLORIDE
     Dosage: UNK
     Route: 048

REACTIONS (4)
  - Foreign body in throat [Unknown]
  - Choking [Unknown]
  - Pharyngeal inflammation [Unknown]
  - Oropharyngeal discomfort [Unknown]
